FAERS Safety Report 5043578-X (Version None)
Quarter: 2006Q3

REPORT INFORMATION
  Report Type: 
  Country: None (occurrence: None)
  Receive Date: 20060706
  Receipt Date: 20060627
  Transmission Date: 20061208
  Serious: Yes (Hospitalization, Other)
  Sender: FDA-Public Use
  Company Number: DE-JNJFOC-20060602659

PATIENT

DRUGS (4)
  1. REMICADE [Suspect]
     Indication: BEHCET'S SYNDROME
     Dosage: 10TH INFUSION
     Route: 042
  2. REMICADE [Suspect]
     Indication: INFLAMMATION
     Dosage: 7TH INFUSION
     Route: 042
  3. ARCOXIA [Concomitant]
     Indication: BEHCET'S SYNDROME
     Dosage: 90
     Route: 065
  4. SAROTEN [Concomitant]
     Indication: ANTIDEPRESSANT THERAPY
     Route: 065

REACTIONS (4)
  - AUTOIMMUNE DISORDER [None]
  - DUPUYTREN'S CONTRACTURE [None]
  - FASCIITIS [None]
  - LUPUS-LIKE SYNDROME [None]
